FAERS Safety Report 5411464-9 (Version None)
Quarter: 2007Q3

REPORT INFORMATION
  Report Type: 
  Country: None (occurrence: None)
  Receive Date: 20070810
  Receipt Date: 20070727
  Transmission Date: 20080115
  Serious: Yes (Hospitalization)
  Sender: FDA-Public Use
  Company Number: JP-PFIZER INC-2007065607

PATIENT
  Age: 69 Year
  Sex: Female

DRUGS (3)
  1. MIGLITOL TABLET [Suspect]
     Indication: POST GASTRIC SURGERY SYNDROME
     Dosage: DAILY DOSE:75MG
     Route: 048
     Dates: start: 20070723, end: 20070724
  2. LUVOX [Concomitant]
     Route: 048
  3. GASMOTIN [Concomitant]
     Route: 048

REACTIONS (2)
  - ABDOMINAL PAIN [None]
  - ELECTROLYTE IMBALANCE [None]
